FAERS Safety Report 6019084-2 (Version None)
Quarter: 2008Q4

REPORT INFORMATION
  Report Type: 
  Country: None (occurrence: None)
  Receive Date: 20081224
  Receipt Date: 20081210
  Transmission Date: 20090506
  Serious: Yes (Other)
  Sender: FDA-Public Use
  Company Number: BR-PFIZER INC-2008157245

PATIENT

DRUGS (2)
  1. PROVERA [Suspect]
     Indication: MENORRHAGIA
     Route: 048
  2. HYDROCHLOROTHIAZIDE [Concomitant]
     Route: 065

REACTIONS (1)
  - UTERINE LEIOMYOMA [None]
